FAERS Safety Report 20322473 (Version 4)
Quarter: 2025Q1

REPORT INFORMATION
  Report Type: Spontaneous
  Country: BR (occurrence: BR)
  Receive Date: 20220111
  Receipt Date: 20250204
  Transmission Date: 20250408
  Serious: Yes (Hospitalization, Other)
  Sender: NOVARTIS
  Company Number: BR-NOVARTISPH-NVSC2022BR002359

PATIENT
  Age: 2 Year
  Sex: Male
  Weight: 16.3 kg

DRUGS (3)
  1. ZOLGENSMA [Suspect]
     Active Substance: ONASEMNOGENE ABEPARVOVEC-XIOI
     Indication: Spinal muscular atrophy
     Route: 042
     Dates: start: 20210504
  2. NUSINERSEN [Concomitant]
     Active Substance: NUSINERSEN
     Indication: Spinal muscular atrophy
     Route: 037
     Dates: start: 20200304, end: 20210608
  3. NUSINERSEN [Concomitant]
     Active Substance: NUSINERSEN
     Route: 037
     Dates: start: 20210608

REACTIONS (6)
  - Cardio-respiratory arrest [Recovered/Resolved]
  - Oculogyric crisis [Not Recovered/Not Resolved]
  - Epileptic encephalopathy [Not Recovered/Not Resolved]
  - Loss of consciousness [Recovered/Resolved]
  - Cyanosis [Recovered/Resolved]
  - Oxygen saturation decreased [Recovered/Resolved]

NARRATIVE: CASE EVENT DATE: 20211204
